FAERS Safety Report 11004714 (Version 1)
Quarter: 2015Q2

REPORT INFORMATION
  Report Type: Spontaneous
  Country: US (occurrence: US)
  Receive Date: 20150409
  Receipt Date: 20150409
  Transmission Date: 20150821
  Serious: Yes (Other)
  Sender: FDA-Public Use
  Company Number: US-PFIZER INC-2015118594

PATIENT
  Age: 60 Year
  Sex: Female
  Weight: 54.42 kg

DRUGS (1)
  1. LYRICA [Suspect]
     Active Substance: PREGABALIN
     Indication: NERVE INJURY
     Dosage: UNK

REACTIONS (6)
  - Diabetes mellitus [Unknown]
  - Nerve injury [Unknown]
  - Activities of daily living impaired [Unknown]
  - Abasia [Unknown]
  - Pancreatitis [Unknown]
  - Neck injury [Unknown]
